FAERS Safety Report 5900212-1 (Version None)
Quarter: 2008Q3

REPORT INFORMATION
  Report Type: 
  Country: None (occurrence: None)
  Receive Date: 20080926
  Receipt Date: 20080917
  Transmission Date: 20090109
  Serious: Yes (Other)
  Sender: FDA-Public Use
  Company Number: US-JNJFOC-20070106552

PATIENT
  Sex: Female
  Weight: 63.5 kg

DRUGS (13)
  1. DURAGESIC-100 [Suspect]
     Indication: BACK PAIN
     Dosage: 36-50 HOURS
     Route: 062
  2. TOPAX [Concomitant]
     Indication: ANXIETY
     Route: 048
  3. EFFEXOR XR [Concomitant]
     Indication: ANXIETY
     Route: 048
  4. PREMARIN [Concomitant]
     Indication: HORMONE REPLACEMENT THERAPY
     Route: 048
  5. DIAZEPAM [Concomitant]
     Indication: TREMOR
     Route: 048
  6. DIAZEPAM [Concomitant]
     Indication: ANXIETY
     Route: 048
  7. PERCOCET [Concomitant]
     Indication: PAIN
     Route: 048
  8. PHENERGAN N [Concomitant]
     Indication: NAUSEA
     Dosage: AS NEEDED
     Route: 048
  9. ZANAFLEX [Concomitant]
     Indication: MUSCLE SPASMS
     Route: 048
  10. TOPAMAX [Concomitant]
     Indication: TREMOR
     Route: 048
  11. VALIUM [Concomitant]
     Indication: TREMOR
     Route: 048
  12. TIZANIDINE HCL [Concomitant]
     Indication: MUSCLE DISORDER
     Route: 048
  13. TRICOR [Concomitant]
     Route: 048

REACTIONS (11)
  - BLINDNESS [None]
  - DIABETES MELLITUS [None]
  - DRY MOUTH [None]
  - INCORRECT DRUG ADMINISTRATION DURATION [None]
  - LOOSE TOOTH [None]
  - MUSCLE SPASMS [None]
  - ORAL BACTERIAL INFECTION [None]
  - OVERDOSE [None]
  - PHARMACEUTICAL PRODUCT COMPLAINT [None]
  - SYNCOPE [None]
  - TOOTH ABSCESS [None]
